FAERS Safety Report 7488079-4 (Version None)
Quarter: 2011Q2

REPORT INFORMATION
  Report Type: 
  Country: None (occurrence: None)
  Receive Date: 20110518
  Receipt Date: 20110516
  Transmission Date: 20111010
  Serious: Yes (Other)
  Sender: FDA-Public Use
  Company Number: MY-PFIZER INC-2011104002

PATIENT
  Age: 75 Year
  Sex: Male

DRUGS (6)
  1. HYDROCORTISONE SODIUM SUCCINATE [Concomitant]
  2. ENOXAPARIN [Concomitant]
  3. PIPERACILLIN [Suspect]
     Indication: ACINETOBACTER INFECTION
     Dosage: 9 G, 1X/DAY
     Route: 042
  4. ASPIRIN [Concomitant]
  5. CLOPIDOGREL [Concomitant]
  6. PREDNISOLONE [Concomitant]

REACTIONS (1)
  - MELAENA [None]
